FAERS Safety Report 18243842 (Version 6)
Quarter: 2023Q4

REPORT INFORMATION
  Report Type: Spontaneous
  Country: JP (occurrence: JP)
  Receive Date: 20200908
  Receipt Date: 20231114
  Transmission Date: 20240110
  Serious: Yes (Death, Life-Threatening, Other)
  Sender: FDA-Public Use
  Company Number: JP-JAZZ-2020-JP-011646

PATIENT
  Age: 66 Year
  Sex: Male
  Weight: 69.4 kg

DRUGS (3)
  1. DEFITELIO [Suspect]
     Active Substance: DEFIBROTIDE SODIUM
     Indication: Venoocclusive liver disease
     Dosage: 25 MILLIGRAM/KILOGRAM, DAILY
     Route: 042
     Dates: start: 20200715, end: 20200731
  2. HEPARIN SODIUM [Concomitant]
     Active Substance: HEPARIN SODIUM
     Dosage: UNK
     Dates: end: 20200715
  3. NOREPINEPHRINE [Concomitant]
     Active Substance: NOREPINEPHRINE
     Indication: Hypotension
     Dosage: UNK
     Dates: start: 20200727

REACTIONS (5)
  - Pharyngeal haemorrhage [Fatal]
  - Hypotension [Fatal]
  - Multiple organ dysfunction syndrome [Unknown]
  - Venoocclusive liver disease [Fatal]
  - Renal disorder [Fatal]

NARRATIVE: CASE EVENT DATE: 20200101
